FAERS Safety Report 20996472 (Version 1)
Quarter: 2022Q2

REPORT INFORMATION
  Report Type: Spontaneous
  Country: FR (occurrence: FR)
  Receive Date: 20220623
  Receipt Date: 20220623
  Transmission Date: 20220721
  Serious: Yes (Hospitalization, Other)
  Sender: FDA-Public Use
  Company Number: FR-Zydus-029376

PATIENT

DRUGS (3)
  1. AMIODARONE [Suspect]
     Active Substance: AMIODARONE
     Indication: Product used for unknown indication
     Dosage: 6 GRAM
     Route: 048
  2. PROPRANOLOL [Suspect]
     Active Substance: PROPRANOLOL HYDROCHLORIDE
     Indication: Product used for unknown indication
     Dosage: 1.2 GRAM
     Route: 048
  3. RIVAROXABAN [Suspect]
     Active Substance: RIVAROXABAN
     Indication: Anticoagulant therapy
     Dosage: 280 MILLIGRAM
     Route: 048

REACTIONS (6)
  - Poisoning deliberate [Unknown]
  - Intentional self-injury [Unknown]
  - Hypovolaemic shock [Unknown]
  - Intentional overdose [Unknown]
  - Hypotension [Unknown]
  - Bradycardia [Unknown]
